FAERS Safety Report 20052810 (Version 1)
Quarter: 2021Q4

REPORT INFORMATION
  Report Type: Report from Study
  Country: US (occurrence: US)
  Receive Date: 20211110
  Receipt Date: 20211110
  Transmission Date: 20220303
  Serious: Yes (Hospitalization)
  Sender: FDA-Public Use
  Company Number: US-MYLANLABS-2021M1082061

PATIENT
  Age: 64 Year
  Sex: Male

DRUGS (2)
  1. AMIODARONE [Suspect]
     Active Substance: AMIODARONE
     Indication: Ventricular fibrillation
     Route: 065
  2. MEXILETINE [Suspect]
     Active Substance: MEXILETINE
     Indication: Ventricular fibrillation
     Route: 065

REACTIONS (1)
  - Drug ineffective [Unknown]
